FAERS Safety Report 15800391 (Version 2)
Quarter: 2019Q1

REPORT INFORMATION
  Report Type: Spontaneous
  Country: MA (occurrence: JO)
  Receive Date: 20190108
  Receipt Date: 20190128
  Transmission Date: 20190417
  Serious: Yes (Hospitalization, Other)
  Sender: FDA-Public Use
  Company Number: PHHY2018JO199809

PATIENT
  Age: 11 Year
  Sex: Female

DRUGS (1)
  1. TEGRETOL [Suspect]
     Active Substance: CARBAMAZEPINE
     Indication: CELL DEATH
     Dosage: 200 MG/KG (20 CARBAMAZEPINE)
     Route: 065

REACTIONS (5)
  - Coma [Recovered/Resolved]
  - Toxicity to various agents [Unknown]
  - Suicide attempt [Unknown]
  - Product use in unapproved indication [Unknown]
  - Loss of consciousness [Recovered/Resolved]
